FAERS Safety Report 15926242 (Version 2)
Quarter: 2025Q4

REPORT INFORMATION
  Report Type: Spontaneous
  Country: TR (occurrence: TR)
  Receive Date: 20190206
  Receipt Date: 20251128
  Transmission Date: 20260117
  Serious: Yes (Other)
  Sender: ASTELLAS
  Company Number: TR-ASTELLAS-2017US051780

PATIENT
  Age: 26 Year
  Sex: Male

DRUGS (15)
  1. PROGRAF [Suspect]
     Active Substance: TACROLIMUS
     Indication: Transplant
     Dosage: BLOOD LEVELS BETWEEN 15 AND 20 NG/ML (STARTED ON DAY 4)
     Route: 048
     Dates: start: 201307, end: 2013
  2. PROGRAF [Suspect]
     Active Substance: TACROLIMUS
     Dosage: TAPERED TO 7^-10 NG/ML 6 MONTHS POSTOPERATIVELY
     Route: 048
     Dates: start: 201401, end: 2014
  3. PROGRAF [Suspect]
     Active Substance: TACROLIMUS
     Dosage: DOSE INCREASED
     Route: 048
     Dates: start: 201409
  4. THYMOCYTE IMMUNE GLOBULIN NOS [Concomitant]
     Active Substance: THYMOCYTE IMMUNE GLOBULIN NOS
     Indication: Transplant
     Dosage: STOPPED ON DAYS 7^-10
     Route: 065
     Dates: start: 201307, end: 2013
  5. PREDNISOLONE [Concomitant]
     Active Substance: PREDNISOLONE
     Indication: Transplant
     Dosage: TAPERED DOWN
     Route: 065
     Dates: start: 201307, end: 2014
  6. PREDNISOLONE [Concomitant]
     Active Substance: PREDNISOLONE
     Route: 065
     Dates: start: 201307, end: 201307
  7. PREDNISOLONE [Concomitant]
     Active Substance: PREDNISOLONE
     Dosage: TAPERING 6 MONTHS POSTOPERATIVELY
     Route: 065
     Dates: start: 2014
  8. MYCOPHENOLATE MOFETIL [Concomitant]
     Active Substance: MYCOPHENOLATE MOFETIL
     Indication: Transplant
     Route: 065
     Dates: start: 2014
  9. NYSTATIN [Concomitant]
     Active Substance: NYSTATIN
     Indication: Antifungal prophylaxis
     Route: 048
     Dates: start: 201307
  10. VALACYCLOVIR [Concomitant]
     Active Substance: VALACYCLOVIR HYDROCHLORIDE
     Indication: Prophylaxis
     Route: 048
     Dates: start: 201307
  11. HEPARIN [Concomitant]
     Active Substance: HEPARIN SODIUM
     Indication: Prophylaxis
     Dosage: FOR 5 DAYS POSTOPERATIVELY
     Route: 058
     Dates: start: 201307, end: 2013
  12. PYRIMETHAMINE\SULFADOXINE [Concomitant]
     Active Substance: PYRIMETHAMINE\SULFADOXINE
     Indication: Prophylaxis
     Route: 065
     Dates: start: 201307
  13. THIOPENTAL SODIUM [Concomitant]
     Active Substance: THIOPENTAL SODIUM
     Indication: Induction of anaesthesia
     Route: 065
  14. FENTANYL [Concomitant]
     Active Substance: FENTANYL
     Indication: Induction of anaesthesia
     Route: 065
  15. ROCURONIUM BROMIDE [Concomitant]
     Active Substance: ROCURONIUM BROMIDE
     Indication: Induction of anaesthesia
     Route: 065

REACTIONS (5)
  - Infection [Recovered/Resolved]
  - Haemodynamic instability [Unknown]
  - Delirium [Unknown]
  - Pancytopenia [Unknown]
  - Off label use [Unknown]

NARRATIVE: CASE EVENT DATE: 20130701
